FAERS Safety Report 17214645 (Version 1)
Quarter: 2019Q4

REPORT INFORMATION
  Report Type: Other
  Country: FR (occurrence: FR)
  Receive Date: 20191230
  Receipt Date: 20191230
  Transmission Date: 20200122
  Serious: Yes (Hospitalization, Other)
  Sender: FDA-Public Use
  Company Number: FR-NEOPHARMA INC-000273

PATIENT
  Age: 62 Year
  Sex: Female

DRUGS (1)
  1. AMOXICILLIN. [Suspect]
     Active Substance: AMOXICILLIN
     Indication: TOOTH DISORDER
     Dosage: SINGLE ORAL CHALLENGE WITH 500 MG
     Route: 048

REACTIONS (2)
  - Meningitis aseptic [Unknown]
  - Type IV hypersensitivity reaction [Unknown]
